FAERS Safety Report 12876316 (Version 1)
Quarter: 2016Q4

REPORT INFORMATION
  Report Type: Spontaneous
  Country: US (occurrence: US)
  Receive Date: 20161021
  Receipt Date: 20161021
  Transmission Date: 20170207
  Serious: Yes (Hospitalization)
  Sender: FDA-Public Use
  Company Number: None

PATIENT
  Age: 65 Year
  Sex: Male
  Weight: 103 kg

DRUGS (2)
  1. INSULIN [Suspect]
     Active Substance: INSULIN NOS
     Indication: DIABETES MELLITUS
     Route: 058
     Dates: start: 20160531, end: 20160723
  2. INSULIN [Suspect]
     Active Substance: INSULIN NOS
     Indication: DIABETES MELLITUS
     Route: 058
     Dates: start: 20160623, end: 20160723

REACTIONS (7)
  - Decreased appetite [None]
  - Acute kidney injury [None]
  - Tremor [None]
  - Hypophagia [None]
  - Diarrhoea [None]
  - Confusional state [None]
  - Hypoglycaemia [None]

NARRATIVE: CASE EVENT DATE: 20160720
